FAERS Safety Report 9980792 (Version 1)
Quarter: 2014Q1

REPORT INFORMATION
  Report Type: Spontaneous
  Country: GB (occurrence: GB)
  Receive Date: 20140307
  Receipt Date: 20140307
  Transmission Date: 20141002
  Serious: Yes (Life-Threatening)
  Sender: FDA-Public Use
  Company Number: PHHY2014GB024260

PATIENT
  Age: 55 Year
  Sex: Female
  Weight: 61.82 kg

DRUGS (1)
  1. METRONIDAZOLE [Suspect]
     Dates: start: 20140217

REACTIONS (1)
  - Pharyngeal oedema [Recovered/Resolved]
